FAERS Safety Report 8103381-0 (Version None)
Quarter: 2012Q1

REPORT INFORMATION
  Report Type: 
  Country: None (occurrence: None)
  Receive Date: 20120201
  Receipt Date: 20120126
  Transmission Date: 20120608
  Serious: Yes (Other)
  Sender: FDA-Public Use
  Company Number: US-PFIZER INC-2012022950

PATIENT
  Sex: Female
  Weight: 117 kg

DRUGS (7)
  1. SERTRALINE HYDROCHLORIDE [Suspect]
     Dosage: 200 MG, DAILY
     Dates: start: 20110101
  2. ACETYLSALICYLIC ACID [Concomitant]
     Dosage: 325 MG, DAILY
  3. ABILIFY [Suspect]
     Indication: MOOD ALTERED
     Dosage: UNK
  4. LEVOTHYROXINE [Concomitant]
     Indication: THYROID DISORDER
     Dosage: 150 UG, DAILY
  5. SERTRALINE HYDROCHLORIDE [Suspect]
     Indication: BIPOLAR DISORDER
     Dosage: 100 MG, DAILY
  6. LITHIUM CARBONATE [Suspect]
     Indication: MOOD ALTERED
     Dosage: 900 MG, DAILY
  7. TRAMADOL HCL [Suspect]
     Dosage: UNK

REACTIONS (6)
  - WEIGHT INCREASED [None]
  - SUICIDAL IDEATION [None]
  - CEREBROVASCULAR ACCIDENT [None]
  - DEPRESSION [None]
  - HYPERTENSION [None]
  - INSOMNIA [None]
